FAERS Safety Report 12707543 (Version 3)
Quarter: 2016Q4

REPORT INFORMATION
  Report Type: Report from Study
  Country: RU (occurrence: RU)
  Receive Date: 20160901
  Receipt Date: 20161018
  Transmission Date: 20170207
  Serious: Yes (Death, Life-Threatening, Hospitalization)
  Sender: FDA-Public Use
  Company Number: RU-OTSUKA-2016_021006

PATIENT
  Age: 68 Year
  Sex: Female
  Weight: 62.5 kg

DRUGS (10)
  1. CLEMASTINE [Concomitant]
     Active Substance: CLEMASTINE
     Indication: PREMEDICATION
     Dosage: 2 MG, IN 1 TOTAL
     Route: 042
     Dates: start: 20160804, end: 20160804
  2. TIENAM [Concomitant]
     Active Substance: CILASTATIN SODIUM\IMIPENEM
     Indication: PYREXIA
     Dosage: 500 MG, 3 IN 1 DAY
     Route: 042
     Dates: start: 20160808, end: 20160817
  3. ALLOPURINOL. [Concomitant]
     Active Substance: ALLOPURINOL
     Indication: TUMOUR LYSIS SYNDROME
     Dosage: 300 MG, 1 IN 1 DAY
     Route: 048
     Dates: start: 20160713, end: 20160816
  4. PARACETAMOL [Concomitant]
     Active Substance: ACETAMINOPHEN
     Indication: PREMEDICATION
     Dosage: 1000 MG, IN 1 TOTAL
     Route: 048
     Dates: start: 20160804, end: 20160804
  5. *JNJ-56022473 [Suspect]
     Active Substance: INVESTIGATIONAL PRODUCT
     Indication: ACUTE MYELOID LEUKAEMIA
     Dosage: 567 MG
     Route: 042
     Dates: start: 20160721
  6. BISEPTOL [Concomitant]
     Active Substance: SULFAMETHOXAZOLE\TRIMETHOPRIM
     Indication: PROPHYLAXIS
     Dosage: 1920 MG, 1 IN 1 DAY
     Route: 048
     Dates: start: 20160713, end: 20160811
  7. FLUCONAZOLE. [Concomitant]
     Active Substance: FLUCONAZOLE
     Indication: PROPHYLAXIS
     Dosage: 150 MG, 1 IN 1 DAY
     Route: 048
     Dates: start: 20160713, end: 20160816
  8. METHYLPREDNISOLONE. [Concomitant]
     Active Substance: METHYLPREDNISOLONE
     Indication: PREMEDICATION
     Dosage: 100 MG, IN 1 TOTAL
     Route: 042
     Dates: start: 20160804, end: 20160804
  9. DACOGEN [Suspect]
     Active Substance: DECITABINE
     Indication: ACUTE MYELOID LEUKAEMIA
     Dosage: 34 MG
     Route: 042
     Dates: start: 20160714
  10. BISEPTOL [Concomitant]
     Active Substance: SULFAMETHOXAZOLE\TRIMETHOPRIM
     Dosage: 1920 MG, 3 IN 1 WEEK
     Route: 048
     Dates: start: 20160814, end: 20160817

REACTIONS (1)
  - Multiple organ dysfunction syndrome [Fatal]

NARRATIVE: CASE EVENT DATE: 20160817
